FAERS Safety Report 6284996-1 (Version None)
Quarter: 2009Q3

REPORT INFORMATION
  Report Type: 
  Country: None (occurrence: None)
  Receive Date: 20090727
  Receipt Date: 20090216
  Transmission Date: 20100115
  Serious: Yes (Hospitalization)
  Sender: FDA-Public Use
  Company Number: US-ABBOTT-09P-163-0558608-00

PATIENT
  Sex: Male

DRUGS (3)
  1. NORVIR [Suspect]
     Indication: DRUG USE FOR UNKNOWN INDICATION
     Dates: start: 20071001
  2. REYATAZ [Suspect]
     Indication: DRUG USE FOR UNKNOWN INDICATION
     Dates: start: 20071001
  3. TRUVADA [Suspect]
     Indication: DRUG USE FOR UNKNOWN INDICATION
     Dates: start: 20071001

REACTIONS (1)
  - PANCREATITIS ACUTE [None]
